FAERS Safety Report 6346223-6 (Version None)
Quarter: 2009Q3

REPORT INFORMATION
  Report Type: 
  Country: None (occurrence: None)
  Receive Date: 20090909
  Receipt Date: 20090901
  Transmission Date: 20100115
  Serious: Yes (Other)
  Sender: FDA-Public Use
  Company Number: PHHY2009CA37621

PATIENT
  Sex: Female

DRUGS (1)
  1. ACLASTA [Suspect]
     Indication: OSTEOPOROSIS
     Dosage: UNK
     Route: 042
     Dates: start: 20090406

REACTIONS (7)
  - ANAL CANCER [None]
  - ARTHRALGIA [None]
  - BONE PAIN [None]
  - COLON CANCER [None]
  - LEUKAEMIA [None]
  - PAIN [None]
  - RIB FRACTURE [None]
